FAERS Safety Report 16120112 (Version 5)
Quarter: 2022Q2

REPORT INFORMATION
  Report Type: Report from Study
  Country: KR (occurrence: KR)
  Receive Date: 20190326
  Receipt Date: 20220404
  Transmission Date: 20220721
  Serious: Yes (Hospitalization)
  Sender: FDA-Public Use
  Company Number: PHHY2019KR063883

PATIENT
  Age: 70 Year
  Sex: Male
  Weight: 67 kg

DRUGS (12)
  1. ENTRESTO [Suspect]
     Active Substance: SACUBITRIL\VALSARTAN
     Indication: Cardiac failure chronic
     Dosage: 100 MG
     Route: 048
     Dates: start: 20180915, end: 20190306
  2. PLAVIX [Concomitant]
     Active Substance: CLOPIDOGREL BISULFATE
     Indication: Prophylaxis
     Dosage: 75 MG
     Route: 065
     Dates: start: 20171013
  3. PLAVIX [Concomitant]
     Active Substance: CLOPIDOGREL BISULFATE
     Dosage: 20 MG
     Route: 065
  4. LIPINON [Concomitant]
     Indication: Hyperlipidaemia
     Dosage: 20 MG
     Route: 065
     Dates: start: 20160615
  5. DIGOXIN [Concomitant]
     Active Substance: DIGOXIN
     Indication: Cardiac failure chronic
     Dosage: 0.25 MG
     Route: 065
     Dates: start: 20160226
  6. LASIX [Concomitant]
     Active Substance: FUROSEMIDE
     Indication: Cardiac failure chronic
     Dosage: 40 MG
     Route: 065
     Dates: start: 20190308
  7. ALDACTONE [Concomitant]
     Active Substance: SPIRONOLACTONE
     Indication: Cardiac failure chronic
     Dosage: 25 MG
     Route: 065
     Dates: start: 20190308
  8. RAMIPRIL [Concomitant]
     Active Substance: RAMIPRIL
     Indication: Cardiac failure chronic
     Dosage: 5 MG
     Route: 065
     Dates: start: 20190314
  9. GLIMEPIRIDE\METFORMIN [Concomitant]
     Active Substance: GLIMEPIRIDE\METFORMIN
     Indication: Diabetes mellitus
     Dosage: 1 DOSAGE FORM
     Route: 065
     Dates: start: 20190310
  10. AMARYL [Concomitant]
     Active Substance: GLIMEPIRIDE
     Indication: Diabetes mellitus
     Dosage: 4 MG
     Route: 065
     Dates: start: 2018, end: 20190309
  11. ZEMIMET [Concomitant]
     Indication: Diabetes mellitus
     Dosage: 1 DOSAGE FORM
     Route: 065
     Dates: start: 2018, end: 20190307
  12. TORSEMIDE [Concomitant]
     Active Substance: TORSEMIDE
     Indication: Cardiac failure chronic
     Dosage: 5 MG
     Route: 065
     Dates: start: 20160615, end: 20190308

REACTIONS (5)
  - Cardiogenic shock [Recovered/Resolved]
  - Cardiomegaly [Recovered/Resolved]
  - Cardiac failure congestive [Recovered/Resolved]
  - Systolic dysfunction [Recovered/Resolved]
  - Dyspnoea [Recovered/Resolved]

NARRATIVE: CASE EVENT DATE: 20190306
